FAERS Safety Report 16091110 (Version 1)
Quarter: 2019Q1

REPORT INFORMATION
  Report Type: Spontaneous
  Country: CA (occurrence: CA)
  Receive Date: 20190319
  Receipt Date: 20190319
  Transmission Date: 20190418
  Serious: Yes (Other)
  Sender: FDA-Public Use
  Company Number: PHHY2019CA044656

PATIENT

DRUGS (2)
  1. SANDOZ DILTIAZEM CD [Suspect]
     Active Substance: DILTIAZEM
     Dosage: 240 MG, UNK
     Route: 065
  2. SANDOZ DILTIAZEM CD [Suspect]
     Active Substance: DILTIAZEM
     Indication: ATRIAL FIBRILLATION
     Dosage: 120 MG, UNK
     Route: 065

REACTIONS (4)
  - Product use in unapproved indication [Unknown]
  - Drug ineffective [Unknown]
  - Blood pressure decreased [Unknown]
  - Product prescribing error [Unknown]
